FAERS Safety Report 17503591 (Version 1)
Quarter: 2020Q1

REPORT INFORMATION
  Report Type: Spontaneous
  Country: US (occurrence: US)
  Receive Date: 20200305
  Receipt Date: 20200305
  Transmission Date: 20200409
  Serious: No
  Sender: FDA-Public Use
  Company Number: US-ROCHE-2317260

PATIENT
  Sex: Female
  Weight: 72.64 kg

DRUGS (5)
  1. CLARITIN [Concomitant]
     Active Substance: LORATADINE
     Dosage: ONGOING; UNKNOWN
     Route: 048
     Dates: start: 20180730
  2. FLONASE [Concomitant]
     Active Substance: FLUTICASONE PROPIONATE
     Dosage: ONGOING; UNKNOWN
     Route: 045
     Dates: start: 20180730
  3. LYRICA [Concomitant]
     Active Substance: PREGABALIN
     Dosage: ONGOING; UNKNOWN
     Route: 048
     Dates: start: 20180730
  4. MELATONIN [Concomitant]
     Active Substance: MELATONIN
     Dosage: ONGOING; UNKNOWN
     Route: 048
     Dates: start: 20180730
  5. XOLAIR [Suspect]
     Active Substance: OMALIZUMAB
     Indication: ASTHMA
     Dosage: ONGOING; YES
     Route: 058
     Dates: start: 20180730

REACTIONS (2)
  - Malaise [Unknown]
  - Sinusitis [Unknown]
